FAERS Safety Report 20582356 (Version 1)
Quarter: 2022Q1

REPORT INFORMATION
  Report Type: Spontaneous
  Country: US (occurrence: None)
  Receive Date: 20220310
  Receipt Date: 20220310
  Transmission Date: 20220423
  Serious: No
  Sender: FDA-Public Use
  Company Number: None

PATIENT
  Age: 58 Year
  Sex: Female

DRUGS (1)
  1. TEMODAR [Suspect]
     Active Substance: TEMOZOLOMIDE
     Indication: Product used for unknown indication
     Dosage: OTHER QUANTITY : 270;?FREQUENCY : DAILY;?
     Route: 048
     Dates: start: 20220202

REACTIONS (2)
  - Red blood cell count decreased [None]
  - Packed red blood cell transfusion [None]

NARRATIVE: CASE EVENT DATE: 20220307
